FAERS Safety Report 4621315-8 (Version None)
Quarter: 2005Q1

REPORT INFORMATION
  Report Type: 
  Country: None (occurrence: None)
  Receive Date: 20050322
  Receipt Date: 20050322
  Transmission Date: 20050727
  Serious: Yes (Hospitalization)
  Sender: FDA-Public Use
  Company Number: None

PATIENT
  Age: 54 Year
  Sex: Female
  Weight: 70.7611 kg

DRUGS (9)
  1. CAPECITABINE 1300 MG BID [Suspect]
     Indication: BREAST CANCER METASTATIC
     Dosage: 1300 MG BID PO
     Route: 048
     Dates: start: 20050317, end: 20050318
  2. TAXOTERE [Suspect]
     Indication: BREAST CANCER METASTATIC
     Dosage: 45 MG IV
     Route: 042
     Dates: start: 20050317
  3. SYNTHRPOD [Concomitant]
  4. LOATONICLE [Concomitant]
  5. ZOLOFT [Concomitant]
  6. DECADRON [Concomitant]
  7. XANAX [Concomitant]
  8. KYTRIL [Concomitant]
  9. ATIVAN [Concomitant]

REACTIONS (3)
  - CHILLS [None]
  - PYREXIA [None]
  - VOMITING [None]
